FAERS Safety Report 13707832 (Version 1)
Quarter: 2017Q2

REPORT INFORMATION
  Report Type: Spontaneous
  Country: US (occurrence: US)
  Receive Date: 20170630
  Receipt Date: 20170630
  Transmission Date: 20170830
  Serious: Yes (Other)
  Sender: FDA-Public Use
  Company Number: US-PFIZER INC-2017277327

PATIENT
  Sex: Male
  Weight: 129.2 kg

DRUGS (6)
  1. XANAX [Suspect]
     Active Substance: ALPRAZOLAM
     Indication: BIPOLAR DISORDER
     Dosage: 0.5 MG, 4X/DAY (EVERY 6 HOURS)
     Route: 048
  2. XANAX [Suspect]
     Active Substance: ALPRAZOLAM
     Indication: DEPRESSION
     Dosage: 1.5 MG, EVERY 4 HRS (FOUR TIMES A DAY)
     Route: 048
  3. PRILOSEC [Concomitant]
     Active Substance: OMEPRAZOLE MAGNESIUM
     Indication: DYSPEPSIA
     Dosage: UNK UNK, 1X/DAY
     Route: 048
  4. XANAX [Suspect]
     Active Substance: ALPRAZOLAM
     Indication: ANXIETY DISORDER
  5. PRILOSEC [Concomitant]
     Active Substance: OMEPRAZOLE MAGNESIUM
     Indication: HIATUS HERNIA
  6. PRILOSEC [Concomitant]
     Active Substance: OMEPRAZOLE MAGNESIUM
     Indication: GASTROOESOPHAGEAL REFLUX DISEASE

REACTIONS (14)
  - Agitation [Unknown]
  - Somnolence [Unknown]
  - Pancreatic duct obstruction [Unknown]
  - Stress [Unknown]
  - Emotional distress [Unknown]
  - Bipolar I disorder [Unknown]
  - Cholecystitis infective [Unknown]
  - Anger [Unknown]
  - Blood pressure increased [Recovered/Resolved]
  - Drug effect decreased [Unknown]
  - Drug dose omission [Unknown]
  - Pancreatitis [Unknown]
  - Incoherent [Unknown]
  - Memory impairment [Unknown]

NARRATIVE: CASE EVENT DATE: 201706
